FAERS Safety Report 5724559-7 (Version None)
Quarter: 2008Q2

REPORT INFORMATION
  Report Type: 
  Country: None (occurrence: None)
  Receive Date: 20080428
  Receipt Date: 20080410
  Transmission Date: 20081010
  Serious: Yes (Hospitalization)
  Sender: FDA-Public Use
  Company Number: 2008S1005975

PATIENT
  Age: 3 Year
  Sex: Male

DRUGS (9)
  1. ISOTRETINOIN [Suspect]
     Indication: NEUROBLASTOMA
     Dosage: 130 MG/M**2;, 130 MG/M**2;
  2. VINCRISTINE [Concomitant]
  3. CYCLOPHOSPHAMIDE [Concomitant]
  4. DOXORUBICIN HCL [Concomitant]
  5. CISPLATIN [Concomitant]
  6. ETOPOSIDE [Concomitant]
  7. MELPHALAN (MELPHALAN) [Concomitant]
  8. FLUCONAZOLE [Concomitant]
  9. FLUCONAZOLE [Concomitant]

REACTIONS (5)
  - BLOOD PARATHYROID HORMONE INCREASED [None]
  - BLOOD UREA INCREASED [None]
  - CREATININE RENAL CLEARANCE DECREASED [None]
  - HYPERCALCAEMIA [None]
  - PNEUMONIA FUNGAL [None]
